FAERS Safety Report 9070246 (Version 1)
Quarter: 2013Q1

REPORT INFORMATION
  Report Type: Spontaneous
  Country: US (occurrence: US)
  Receive Date: 20130215
  Receipt Date: 20130215
  Transmission Date: 20140127
  Serious: No
  Sender: FDA-Public Use
  Company Number: US-009507513-1302USA007272

PATIENT
  Sex: Female

DRUGS (1)
  1. COPPERTONE SPORT PRO SERIES CLEAR CONTINUOUS SPRAY SPF-30 [Suspect]
     Indication: PRODUCT USED FOR UNKNOWN INDICATION
     Dosage: UNK, UNKNOWN
     Route: 048

REACTIONS (1)
  - Eye irritation [Not Recovered/Not Resolved]
